FAERS Safety Report 4646280-9 (Version None)
Quarter: 2005Q2

REPORT INFORMATION
  Report Type: 
  Country: None (occurrence: None)
  Receive Date: 20050427
  Receipt Date: 20050420
  Transmission Date: 20051028
  Serious: Yes (Death, Hospitalization, Other)
  Sender: FDA-Public Use
  Company Number: GB-MERCK-0504GBR00138

PATIENT
  Age: 94 Year
  Sex: Female
  Weight: 86 kg

DRUGS (9)
  1. ZOCOR [Suspect]
     Indication: BLOOD CHOLESTEROL INCREASED
     Route: 048
  2. LACTULOSE [Concomitant]
     Route: 065
  3. ASPIRIN AND DIPYRIDAMOLE [Concomitant]
     Route: 065
  4. IRON (UNSPECIFIED) [Concomitant]
     Route: 065
  5. ACETAMINOPHEN [Concomitant]
     Route: 065
  6. CALCIUM (UNSPECIFIED) [Concomitant]
     Route: 065
  7. VITAMIN D (UNSPECIFIED) [Concomitant]
     Route: 065
  8. CITALOPRAM [Concomitant]
     Route: 065
  9. FUROSEMIDE [Concomitant]
     Route: 065

REACTIONS (2)
  - HEPATIC FAILURE [None]
  - JAUNDICE CHOLESTATIC [None]
